FAERS Safety Report 10797159 (Version 1)
Quarter: 2015Q1

REPORT INFORMATION
  Report Type: Spontaneous
  Country: US (occurrence: US)
  Receive Date: 20150216
  Receipt Date: 20150216
  Transmission Date: 20150721
  Serious: No
  Sender: FDA-Public Use
  Company Number: US-TEVA-523122USA

PATIENT
  Sex: Female

DRUGS (1)
  1. ALENDRONIC ACID [Suspect]
     Active Substance: ALENDRONIC ACID
     Indication: OSTEOPOROSIS
     Dosage: 10 MILLIGRAM DAILY;
     Route: 048
     Dates: start: 201406, end: 201410

REACTIONS (14)
  - Dysphonia [Unknown]
  - Tooth disorder [Unknown]
  - Joint stiffness [Recovered/Resolved]
  - Feeling abnormal [Unknown]
  - Hypoaesthesia [Unknown]
  - Oral pain [Unknown]
  - Gait disturbance [Unknown]
  - Labyrinthitis [Unknown]
  - Ear pain [Unknown]
  - Pain in jaw [Recovered/Resolved]
  - Joint swelling [Unknown]
  - Peripheral swelling [Unknown]
  - Musculoskeletal stiffness [Unknown]
  - Hearing impaired [Unknown]
